FAERS Safety Report 7604400-8 (Version None)
Quarter: 2011Q2

REPORT INFORMATION
  Report Type: 
  Country: None (occurrence: None)
  Receive Date: 20110630
  Receipt Date: 20110616
  Transmission Date: 20111010
  Serious: Yes (Disabling)
  Sender: FDA-Public Use
  Company Number: AUR-APL-2011-01233

PATIENT
  Age: 42 Year
  Sex: Male

DRUGS (3)
  1. ALBUTEROL SULFATE [Concomitant]
  2. FOSTAIR (BECLOMETASONE DIPROPIONATE) [Concomitant]
  3. LISINOPRIL [Suspect]
     Indication: HYPERTENSION
     Dosage: 10 MG (10 MG, 1 IN 1 D), ORAL
     Route: 048
     Dates: start: 20101213, end: 20110311

REACTIONS (6)
  - NASAL DRYNESS [None]
  - QUALITY OF LIFE DECREASED [None]
  - LIP DRY [None]
  - RAYNAUD'S PHENOMENON [None]
  - DRY SKIN [None]
  - INCREASED TENDENCY TO BRUISE [None]
